FAERS Safety Report 22522620 (Version 1)
Quarter: 2023Q2

REPORT INFORMATION
  Report Type: Spontaneous
  Country: US (occurrence: US)
  Receive Date: 20230605
  Receipt Date: 20230605
  Transmission Date: 20230721
  Serious: No
  Sender: FDA-Public Use
  Company Number: US-002147023-NVSC2023US127357

PATIENT
  Age: 0 Year
  Sex: Male

DRUGS (3)
  1. ZOLGENSMA [Suspect]
     Active Substance: ONASEMNOGENE ABEPARVOVEC-XIOI
     Indication: Spinal muscular atrophy
     Dosage: UNK, ONCE/SINGLE
     Route: 042
     Dates: start: 20211217, end: 20211217
  2. ZOLGENSMA [Suspect]
     Active Substance: ONASEMNOGENE ABEPARVOVEC-XIOI
     Dosage: 60.5 ML, ONCE/SINGLE
     Route: 042
     Dates: start: 20220617, end: 20220617
  3. PREDNISOLONE [Concomitant]
     Active Substance: PREDNISOLONE
     Indication: Product used for unknown indication
     Route: 065

REACTIONS (1)
  - Speech disorder developmental [Unknown]

NARRATIVE: CASE EVENT DATE: 20211217
